FAERS Safety Report 10079576 (Version 1)
Quarter: 2014Q2

REPORT INFORMATION
  Report Type: Spontaneous
  Country: US (occurrence: None)
  Receive Date: 20140414
  Receipt Date: 20140414
  Transmission Date: 20141212
  Serious: Yes (Disabling, Other)
  Sender: FDA-Public Use
  Company Number: None

PATIENT
  Age: 47 Year
  Sex: Female
  Weight: 63.5 kg

DRUGS (2)
  1. LEVOFLOXACIN [Suspect]
     Indication: SINUSITIS
     Dates: start: 20130708, end: 20130713
  2. LEVOFLOXACIN [Suspect]
     Indication: EAR PAIN
     Dates: start: 20130708, end: 20130713

REACTIONS (16)
  - Pain [None]
  - Tendon pain [None]
  - Muscular weakness [None]
  - Vision blurred [None]
  - Insomnia [None]
  - Tinnitus [None]
  - Amnesia [None]
  - Photophobia [None]
  - Abdominal pain [None]
  - Muscle atrophy [None]
  - Arthralgia [None]
  - Pain in extremity [None]
  - Arthralgia [None]
  - Arthralgia [None]
  - Arthralgia [None]
  - Musculoskeletal pain [None]
